FAERS Safety Report 23334804 (Version 4)
Quarter: 2025Q2

REPORT INFORMATION
  Report Type: Other
  Country: US (occurrence: US)
  Receive Date: 20231224
  Receipt Date: 20250623
  Transmission Date: 20250716
  Serious: No
  Sender: TRAVERE THERAPEUTICS
  Company Number: US-TRAVERE-2023TVT00831

PATIENT
  Sex: Male

DRUGS (1)
  1. FILSPARI [Suspect]
     Active Substance: SPARSENTAN
     Indication: IgA nephropathy
     Route: 048
     Dates: start: 20231122, end: 20250521

REACTIONS (6)
  - Pruritus [Unknown]
  - Blood potassium increased [Unknown]
  - Blood albumin increased [Unknown]
  - Wrong technique in product usage process [Unknown]
  - Glomerular filtration rate abnormal [Unknown]
  - Blood creatinine increased [Unknown]
